FAERS Safety Report 4836053-6 (Version None)
Quarter: 2005Q4

REPORT INFORMATION
  Report Type: 
  Country: None (occurrence: None)
  Receive Date: 20051123
  Receipt Date: 20051021
  Transmission Date: 20060501
  Serious: Yes (Other)
  Sender: FDA-Public Use
  Company Number: US-MERCK-0510USA08525

PATIENT
  Age: 53 Year
  Sex: Female
  Weight: 56 kg

DRUGS (2)
  1. FOSAMAX [Suspect]
     Indication: OSTEOPENIA
     Route: 048
     Dates: start: 20051003, end: 20051017
  2. LUNESTA [Concomitant]
     Route: 065

REACTIONS (5)
  - BONE PAIN [None]
  - CHEST PAIN [None]
  - MYALGIA [None]
  - PAIN [None]
  - TREMOR [None]
